FAERS Safety Report 4632560-X (Version None)
Quarter: 2005Q2

REPORT INFORMATION
  Report Type: 
  Country: None (occurrence: None)
  Receive Date: 20050408
  Receipt Date: 20050308
  Transmission Date: 20051028
  Serious: Yes (Other)
  Sender: FDA-Public Use
  Company Number: 200510512BBE

PATIENT
  Sex: Male

DRUGS (10)
  1. KOATE [Suspect]
     Indication: HAEMOPHILIA
     Dosage: UNK, NI
     Route: 065
  2. KONYNE [Suspect]
     Indication: HAEMOPHILIA
     Dosage: UNK, NI
     Route: 065
  3. ANTIHEMOPHILIC FACTOR (HUMAN) [Suspect]
     Indication: HAEMOPHILIA
     Dosage: NI
  4. FACTOR IX COMPLEX [Suspect]
     Indication: HAEMOPHILIA
     Dosage: NI
  5. ANTIHEMOPHILIC FACTOR (HUMAN) [Suspect]
     Indication: HAEMOPHILIA
     Dosage: NI
  6. FACTOR IX COMPLEX [Suspect]
     Indication: HAEMOPHILIA
     Dosage: NI
  7. ANTIHEMOPHILIC FACTOR (HUMAN) [Suspect]
     Indication: HAEMOPHILIA
     Dosage: NI
  8. FACTOR IX COMPLEX [Suspect]
     Indication: HAEMOPHILIA
     Dosage: NI
  9. ANTIHEMOPHILIC FACTOR (HUMAN) [Suspect]
     Indication: HAEMOPHILIA
     Dosage: NI
  10. FACTOR IX COMPLEX [Suspect]
     Indication: HAEMOPHILIA
     Dosage: NI

REACTIONS (2)
  - ADVERSE EVENT [None]
  - PHARMACEUTICAL PRODUCT COMPLAINT [None]
